FAERS Safety Report 8570475-5 (Version None)
Quarter: 2012Q3

REPORT INFORMATION
  Report Type: 
  Country: None (occurrence: None)
  Receive Date: 20120803
  Receipt Date: 20120723
  Transmission Date: 20120928
  Serious: No
  Sender: FDA-Public Use
  Company Number: US-ASTRAZENECA-2010SE50161

PATIENT
  Age: 52 Year
  Sex: Female
  Weight: 107.5 kg

DRUGS (2)
  1. SEROQUEL [Suspect]
     Indication: BIPOLAR DISORDER
     Route: 048
  2. SEROQUEL [Suspect]
     Route: 048

REACTIONS (4)
  - BENIGN NEOPLASM [None]
  - AMNESIA [None]
  - MENTAL DISORDER [None]
  - DRUG INEFFECTIVE [None]
